FAERS Safety Report 14895921 (Version 7)
Quarter: 2025Q4

REPORT INFORMATION
  Report Type: Spontaneous
  Country: EU (occurrence: EU)
  Receive Date: 20180515
  Receipt Date: 20251003
  Transmission Date: 20260117
  Serious: Yes (Hospitalization, Other)
  Sender: AUROBINDO
  Company Number: EU-002147023-PHHY2018DE047907

PATIENT
  Age: 94 Year
  Sex: Male
  Weight: 94 kg

DRUGS (32)
  1. IBUPROFEN [Suspect]
     Active Substance: IBUPROFEN
     Indication: Psoriatic arthropathy
     Dosage: 800 OT, 3 TIMES A DAY
     Route: 048
     Dates: start: 20150520
  2. METHOTREXATE [Suspect]
     Active Substance: METHOTREXATE
     Indication: Psoriatic arthropathy
     Dosage: 15 MILLIGRAM, EVERY WEEK
     Route: 048
     Dates: start: 20161215
  3. COSENTYX [Suspect]
     Active Substance: SECUKINUMAB
     Indication: Ankylosing spondylitis
     Dosage: 150 MILLIGRAM, ONCE
     Route: 065
     Dates: start: 20170512
  4. COSENTYX [Suspect]
     Active Substance: SECUKINUMAB
     Dosage: 150 MILLIGRAM, PER APPLICATION
     Route: 065
     Dates: start: 20170519, end: 20170519
  5. COSENTYX [Suspect]
     Active Substance: SECUKINUMAB
     Dosage: 150 MILLIGRAM, PER APPLICATION
     Route: 065
     Dates: start: 20170525
  6. COSENTYX [Suspect]
     Active Substance: SECUKINUMAB
     Dosage: 150 MILLIGRAM, PER APPLICATION
     Route: 065
     Dates: start: 20170526, end: 20170526
  7. COSENTYX [Suspect]
     Active Substance: SECUKINUMAB
     Dosage: 150 MILLIGRAM, PER APPLICATION
     Route: 065
     Dates: start: 20170601
  8. COSENTYX [Suspect]
     Active Substance: SECUKINUMAB
     Dosage: 150 MILLIGRAM
     Route: 065
     Dates: start: 20170602, end: 20170602
  9. COSENTYX [Suspect]
     Active Substance: SECUKINUMAB
     Dosage: 150 MILLIGRAM, PER APPLICATION
     Route: 065
     Dates: start: 20170608
  10. COSENTYX [Suspect]
     Active Substance: SECUKINUMAB
     Dosage: 150 MILLIGRAM, PER APPLICATION
     Route: 065
     Dates: start: 20170609, end: 20170609
  11. COSENTYX [Suspect]
     Active Substance: SECUKINUMAB
     Dosage: 150 MILLIGRAM, PER APPLICATION
     Route: 065
     Dates: start: 20170615
  12. COSENTYX [Suspect]
     Active Substance: SECUKINUMAB
     Dosage: 150 MILLIGRAM, PER APPLICATION
     Route: 065
     Dates: start: 20170710, end: 20170710
  13. COSENTYX [Suspect]
     Active Substance: SECUKINUMAB
     Dosage: 150 MILLIGRAM, PER APPLICATION
     Route: 065
     Dates: start: 20170715
  14. COSENTYX [Suspect]
     Active Substance: SECUKINUMAB
     Dosage: 150 MILLIGRAM, PER APPLICATION
     Route: 065
     Dates: start: 20170813, end: 20170813
  15. COSENTYX [Suspect]
     Active Substance: SECUKINUMAB
     Dosage: 150 MILLIGRAM, PER APPLICATION
     Route: 065
     Dates: start: 20170815
  16. COSENTYX [Suspect]
     Active Substance: SECUKINUMAB
     Dosage: 150 MILLIGRAM, PER APPLICATION
     Route: 065
     Dates: start: 20170915
  17. COSENTYX [Suspect]
     Active Substance: SECUKINUMAB
     Dosage: 150 MILLIGRAM, PER APPLICATION
     Route: 065
     Dates: start: 20171015
  18. COSENTYX [Suspect]
     Active Substance: SECUKINUMAB
     Dosage: 150 MILLIGRAM, PER APPLICATION
     Route: 065
     Dates: start: 20171115
  19. COSENTYX [Suspect]
     Active Substance: SECUKINUMAB
     Dosage: 150 MILLIGRAM, PER APPLICATION
     Route: 065
     Dates: start: 20171215
  20. COSENTYX [Suspect]
     Active Substance: SECUKINUMAB
     Dosage: 150 MILLIGRAM, PER APPLICATION
     Route: 065
     Dates: start: 20180115
  21. COSENTYX [Suspect]
     Active Substance: SECUKINUMAB
     Dosage: 150 MILLIGRAM, PER APPLICATION
     Route: 065
     Dates: start: 20180215
  22. COSENTYX [Suspect]
     Active Substance: SECUKINUMAB
     Dosage: 150 MILLIGRAM, PER APPLICATION
     Route: 065
     Dates: start: 20180315, end: 20180315
  23. Rubiefol [Concomitant]
     Indication: Psoriatic arthropathy
     Dosage: 5 MILLIGRAM, EVERY WEEK
     Route: 048
     Dates: start: 20161215
  24. AMOXICILLIN [Concomitant]
     Active Substance: AMOXICILLIN
     Indication: Prophylaxis
     Dosage: UNK
     Route: 065
  25. ATORVASTATIN [Concomitant]
     Active Substance: ATORVASTATIN
     Indication: Product used for unknown indication
     Dosage: 20 MILLIGRAM, ONCE A DAY
     Route: 065
  26. ATORVASTATIN [Concomitant]
     Active Substance: ATORVASTATIN
     Dosage: 20 MILLIGRAM, ONCE A DAY (0-0-0-1)
     Route: 065
     Dates: start: 201707
  27. ASPIRIN [Concomitant]
     Active Substance: ASPIRIN
     Indication: Product used for unknown indication
     Dosage: 100 MILLIGRAM, ONCE A DAY (1-0-0-0)
     Route: 065
     Dates: start: 201707
  28. METAMIZOLE [Concomitant]
     Active Substance: METAMIZOLE
     Indication: Product used for unknown indication
     Dosage: 30 OT, PRN (MAX 4 PER DAY) ()
     Route: 065
     Dates: start: 201707
  29. PANTOPRAZOLE [Concomitant]
     Active Substance: PANTOPRAZOLE
     Indication: Product used for unknown indication
     Dosage: 40 MILLIGRAM, ONCE A DAY (0-0-0-1)
     Route: 065
     Dates: start: 201707
  30. VALSARTAN [Concomitant]
     Active Substance: VALSARTAN
     Indication: Product used for unknown indication
     Dosage: 80 MILLIGRAM, ONCE A DAY (1-0-0-0)
     Route: 065
     Dates: start: 201707
  31. DAIVOBET [Concomitant]
     Active Substance: BETAMETHASONE DIPROPIONATE\CALCIPOTRIENE
     Indication: Psoriasis
     Dosage: 1 DOSAGE FORM, ONCE A DAY
     Route: 061
  32. RAMIPRIL [Concomitant]
     Active Substance: RAMIPRIL
     Indication: Product used for unknown indication
     Dosage: 5 MILLIGRAM, TWO TIMES A DAY (10 MG DAILY (1-0-1))
     Route: 065

REACTIONS (29)
  - Glomerular filtration rate decreased [Unknown]
  - Urticaria [Unknown]
  - Hyperbilirubinaemia [Unknown]
  - Acute hepatic failure [Unknown]
  - Acute kidney injury [Unknown]
  - Hepatitis E [Recovered/Resolved]
  - Angioedema [Unknown]
  - Cold sweat [Recovering/Resolving]
  - Drug-induced liver injury [Unknown]
  - Liver injury [Unknown]
  - Coordination abnormal [Unknown]
  - C-reactive protein increased [Unknown]
  - Dysphagia [Recovering/Resolving]
  - Faeces soft [Unknown]
  - Blood pressure systolic decreased [Unknown]
  - Dizziness [Unknown]
  - Diarrhoea [Unknown]
  - Infection [Unknown]
  - Feeling cold [Unknown]
  - Palpitations [Unknown]
  - Cardiovascular disorder [Recovering/Resolving]
  - Hyperhidrosis [Unknown]
  - Chromaturia [Unknown]
  - General physical health deterioration [Recovering/Resolving]
  - Transaminases increased [Unknown]
  - Dyspnoea [Unknown]
  - Nausea [Unknown]
  - Jaundice [Unknown]
  - Ocular icterus [Unknown]

NARRATIVE: CASE EVENT DATE: 20170525
